FAERS Safety Report 7579664-X (Version None)
Quarter: 2011Q2

REPORT INFORMATION
  Report Type: 
  Country: None (occurrence: None)
  Receive Date: 20110629
  Receipt Date: 20110609
  Transmission Date: 20111010
  Serious: Yes (Other)
  Sender: FDA-Public Use
  Company Number: US-BAYER-2011-000122

PATIENT
  Age: 35 Year
  Sex: Female
  Weight: 78 kg

DRUGS (8)
  1. BENADRYL [Concomitant]
     Indication: MULTIPLE ALLERGIES
  2. FLONASE [Concomitant]
  3. UNCODEABLE ^UNCLASSIFIABLE^ [Concomitant]
     Indication: ANALGESIC THERAPY
  4. FLUTICASONE PROPIONATE [Concomitant]
  5. YASMIN [Suspect]
     Indication: PRODUCT USED FOR UNKNOWN INDICATION
  6. BISMUTH SUBSALICYLATE [Concomitant]
     Indication: ABDOMINAL PAIN UPPER
  7. ADVIL LIQUI-GELS [Concomitant]
     Indication: ANALGESIC THERAPY
  8. MUCINEX [Concomitant]

REACTIONS (10)
  - RENAL EMBOLISM [None]
  - THROMBOTIC THROMBOCYTOPENIC PURPURA [None]
  - VOMITING [None]
  - EMOTIONAL DISORDER [None]
  - RENAL FAILURE ACUTE [None]
  - PAIN [None]
  - DIARRHOEA [None]
  - NAUSEA [None]
  - MENTAL DISORDER [None]
  - DYSPNOEA [None]
